FAERS Safety Report 17022754 (Version 2)
Quarter: 2020Q2

REPORT INFORMATION
  Report Type: Spontaneous
  Country: US (occurrence: US)
  Receive Date: 20191112
  Receipt Date: 20200513
  Transmission Date: 20200713
  Serious: Yes (Hospitalization)
  Sender: FDA-Public Use
  Company Number: US-TEVA-2019-US-1135231

PATIENT
  Age: 38 Year
  Sex: Female

DRUGS (1)
  1. LISINOPRIL. [Suspect]
     Active Substance: LISINOPRIL
     Indication: HYPERTENSION
     Route: 065

REACTIONS (1)
  - Intestinal angioedema [Recovered/Resolved]
